FAERS Safety Report 23883892 (Version 5)
Quarter: 2024Q3

REPORT INFORMATION
  Report Type: Spontaneous
  Country: US (occurrence: US)
  Receive Date: 20240522
  Receipt Date: 20240820
  Transmission Date: 20241017
  Serious: No
  Sender: PFIZER
  Company Number: US-PFIZER INC-202400171584

PATIENT
  Age: 14 Year
  Sex: Female
  Weight: 35.38 kg

DRUGS (2)
  1. GENOTROPIN [Suspect]
     Active Substance: SOMATROPIN
     Indication: Growth hormone deficiency
     Dosage: 1.2 MG, DAILY (UNDER THE SKIN)
  2. GENOTROPIN [Suspect]
     Active Substance: SOMATROPIN
     Dosage: 1.2 MG, DAILY (6 DAYS PER WEEK)

REACTIONS (5)
  - Drug dose omission by device [Unknown]
  - Device breakage [Unknown]
  - Device leakage [Unknown]
  - Device mechanical issue [Unknown]
  - Device material issue [Unknown]
